FAERS Safety Report 20790758 (Version 4)
Quarter: 2023Q4

REPORT INFORMATION
  Report Type: Spontaneous
  Country: JP (occurrence: JP)
  Receive Date: 20220505
  Receipt Date: 20231127
  Transmission Date: 20240109
  Serious: Yes (Hospitalization, Other)
  Sender: FDA-Public Use
  Company Number: JP-JNJFOC-20220457141

PATIENT
  Age: 2 Decade
  Sex: Male

DRUGS (7)
  1. OPSUMIT [Suspect]
     Active Substance: MACITENTAN
     Indication: Portopulmonary hypertension
     Route: 048
  2. TADALAFIL [Suspect]
     Active Substance: TADALAFIL
     Indication: Portopulmonary hypertension
     Route: 048
  3. SELEXIPAG [Concomitant]
     Active Substance: SELEXIPAG
     Indication: Portopulmonary hypertension
     Dosage: DOSE UNKNOWN
     Route: 048
  4. TREPROSTINIL [Concomitant]
     Active Substance: TREPROSTINIL
     Indication: Portopulmonary hypertension
     Dosage: DOSE UNKNOWN
     Route: 058
  5. TREPROSTINIL [Concomitant]
     Active Substance: TREPROSTINIL
     Dosage: 14.5UL/HR
     Route: 058
  6. RIOCIGUAT [Concomitant]
     Active Substance: RIOCIGUAT
     Indication: Portopulmonary hypertension
     Dosage: DOSE UNKNOWN, GRADUALLY INCREASED
     Route: 048
  7. RIOCIGUAT [Concomitant]
     Active Substance: RIOCIGUAT
     Route: 048

REACTIONS (6)
  - Pulmonary hypertension [Recovering/Resolving]
  - Hospitalisation [Unknown]
  - Fluid retention [Unknown]
  - Off label use [Unknown]
  - Product use in unapproved indication [Unknown]
  - Weight increased [Unknown]
